FAERS Safety Report 13941997 (Version 1)
Quarter: 2017Q3

REPORT INFORMATION
  Report Type: Spontaneous
  Country: IT (occurrence: IT)
  Receive Date: 20170907
  Receipt Date: 20170907
  Transmission Date: 20171127
  Serious: Yes (Other)
  Sender: FDA-Public Use
  Company Number: IT-JNJFOC-20170902640

PATIENT

DRUGS (3)
  1. GOLIMUMAB [Suspect]
     Active Substance: GOLIMUMAB
     Indication: PSORIATIC ARTHROPATHY
     Route: 058
  2. GOLIMUMAB [Suspect]
     Active Substance: GOLIMUMAB
     Indication: RHEUMATOID ARTHRITIS
     Route: 058
  3. GOLIMUMAB [Suspect]
     Active Substance: GOLIMUMAB
     Indication: SPONDYLITIS
     Route: 058

REACTIONS (13)
  - Gastrointestinal disorder [Unknown]
  - Rash [Unknown]
  - Breast cancer [Unknown]
  - Thrombocytopenia [Unknown]
  - Lung disorder [Unknown]
  - Herpes zoster [Unknown]
  - Meningioma [Unknown]
  - Cerebrovascular disorder [Unknown]
  - Neuropathy peripheral [Unknown]
  - Neutropenia [Unknown]
  - Drug ineffective [Unknown]
  - Ovarian cancer [Unknown]
  - Tooth abscess [Unknown]
